FAERS Safety Report 10681793 (Version 5)
Quarter: 2015Q2

REPORT INFORMATION
  Report Type: Spontaneous
  Country: US (occurrence: None)
  Receive Date: 20141224
  Receipt Date: 20150506
  Transmission Date: 20150821
  Serious: Yes (Life-Threatening, Other)
  Sender: FDA-Public Use
  Company Number: ADR-2014-02398

PATIENT
  Age: 51 Year
  Sex: Female

DRUGS (4)
  1. BACLOFEN ORAL 10MG [Suspect]
     Active Substance: BACLOFEN
     Dosage: 10 MG TABLET; UP TO 5 TIMES PER DAY
  2. MORPHINE INTRATHECAL [Suspect]
     Active Substance: MORPHINE
  3. BACLOFEN INTRATHECAL 500 MCG/ML [Suspect]
     Active Substance: BACLOFEN
     Indication: MUSCLE SPASTICITY
  4. DILAUDID [Suspect]
     Active Substance: HYDROMORPHONE HYDROCHLORIDE
     Route: 048

REACTIONS (23)
  - Unresponsive to stimuli [None]
  - Device computer issue [None]
  - Device ineffective [None]
  - Blood glucose decreased [None]
  - Heart rate decreased [None]
  - Somnolence [None]
  - Headache [None]
  - Memory impairment [None]
  - Alopecia [None]
  - Apparent death [None]
  - Diabetes mellitus [None]
  - Blood potassium decreased [None]
  - Burning sensation [None]
  - Injury associated with device [None]
  - Blood pressure immeasurable [None]
  - Device issue [None]
  - No therapeutic response [None]
  - Weight decreased [None]
  - Muscle spasms [None]
  - Blood pressure abnormal [None]
  - Fall [None]
  - Pain in extremity [None]
  - Device dislocation [None]

NARRATIVE: CASE EVENT DATE: 20140712
